FAERS Safety Report 7383746-5 (Version None)
Quarter: 2011Q1

REPORT INFORMATION
  Report Type: 
  Country: None (occurrence: None)
  Receive Date: 20110330
  Receipt Date: 20110322
  Transmission Date: 20110831
  Serious: Yes (Life-Threatening, Other)
  Sender: FDA-Public Use
  Company Number: US-ROCHE-767283

PATIENT
  Sex: Female

DRUGS (1)
  1. BONIVA [Suspect]
     Route: 042
     Dates: start: 20090101

REACTIONS (4)
  - PRESYNCOPE [None]
  - PRODUCT QUALITY ISSUE [None]
  - CONVULSION [None]
  - ANAPHYLACTOID REACTION [None]
